FAERS Safety Report 10037083 (Version 1)
Quarter: 2014Q1

REPORT INFORMATION
  Report Type: Spontaneous
  Country: US (occurrence: US)
  Receive Date: 20140326
  Receipt Date: 20140326
  Transmission Date: 20141002
  Serious: Yes (Death)
  Sender: FDA-Public Use
  Company Number: US-ROCHE-1370523

PATIENT
  Age: 37 Year
  Sex: Male

DRUGS (6)
  1. DIAZEPAM [Suspect]
     Indication: PRODUCT USED FOR UNKNOWN INDICATION
     Route: 048
  2. DIAZEPAM [Suspect]
     Route: 048
  3. FENTANYL [Suspect]
     Indication: PRODUCT USED FOR UNKNOWN INDICATION
     Dosage: 75 MCG/HOUR
     Route: 062
  4. FENTANYL [Suspect]
     Dosage: INCREASED TO 100 MCG/HOUR WITHIN 48 HOURS
     Route: 062
  5. FENTANYL [Suspect]
     Dosage: 50 MCG/HOUR PATCH PLACED 10 MIN PRIOR TO DISCHARGE
     Route: 062
  6. GABAPENTIN [Suspect]
     Indication: PRODUCT USED FOR UNKNOWN INDICATION
     Route: 048

REACTIONS (2)
  - Toxicity to various agents [Fatal]
  - Respiratory arrest [Fatal]
